FAERS Safety Report 15226959 (Version 1)
Quarter: 2018Q3

REPORT INFORMATION
  Report Type: Spontaneous
  Country: DE (occurrence: DE)
  Receive Date: 20180801
  Receipt Date: 20180801
  Transmission Date: 20181010
  Serious: Yes (Other)
  Sender: FDA-Public Use
  Company Number: PHHY2018DE058988

PATIENT
  Age: 35 Year
  Sex: Female

DRUGS (1)
  1. GILENYA [Suspect]
     Active Substance: FINGOLIMOD HYDROCHLORIDE
     Indication: PRODUCT USED FOR UNKNOWN INDICATION
     Route: 065

REACTIONS (10)
  - Hemiparesis [Unknown]
  - Quadriparesis [Unknown]
  - Paraplegia [Unknown]
  - Cranial nerve disorder [Unknown]
  - Central nervous system lesion [Unknown]
  - Multiple sclerosis relapse [Unknown]
  - Bladder dysfunction [Unknown]
  - Gait disturbance [Unknown]
  - Central nervous system lesion [Unknown]
  - Monoparesis [Unknown]

NARRATIVE: CASE EVENT DATE: 201111
